FAERS Safety Report 10370726 (Version 1)
Quarter: 2014Q3

REPORT INFORMATION
  Report Type: Spontaneous
  Country: US (occurrence: None)
  Receive Date: 20140806
  Receipt Date: 20140806
  Transmission Date: 20150326
  Serious: Yes (Other)
  Sender: FDA-Public Use
  Company Number: HA14-288-AE

PATIENT
  Age: 82 Year
  Sex: Male
  Weight: 95.26 kg

DRUGS (11)
  1. METROPOL [Concomitant]
  2. AMLODIPINE [Concomitant]
     Active Substance: AMLODIPINE BESYLATE
  3. TERAZOSIN [Concomitant]
     Active Substance: TERAZOSIN\TERAZOSIN HYDROCHLORIDE
  4. GABAPENTIN. [Suspect]
     Active Substance: GABAPENTIN
     Indication: NEUROPATHY PERIPHERAL
     Dosage: 3 CAPSULES A DAY, ORAL
     Route: 048
     Dates: start: 20130719, end: 20140713
  5. GLIPIZIDE. [Concomitant]
     Active Substance: GLIPIZIDE
  6. VITAMIN B12 [Concomitant]
     Active Substance: CYANOCOBALAMIN
  7. FINASTERIDE. [Concomitant]
     Active Substance: FINASTERIDE
  8. METFORMIN [Concomitant]
     Active Substance: METFORMIN HYDROCHLORIDE
  9. SIMVASTATIN. [Concomitant]
     Active Substance: SIMVASTATIN
  10. LISINOPRIL. [Concomitant]
     Active Substance: LISINOPRIL
  11. JANUVIA [Concomitant]
     Active Substance: SITAGLIPTIN PHOSPHATE

REACTIONS (13)
  - Memory impairment [None]
  - Heart rate decreased [None]
  - Somnolence [None]
  - Sluggishness [None]
  - Asthenia [None]
  - Diarrhoea [None]
  - Abdominal pain upper [None]
  - Flatulence [None]
  - Nausea [None]
  - Hypotension [None]
  - Fatigue [None]
  - Paraesthesia [None]
  - Epigastric discomfort [None]

NARRATIVE: CASE EVENT DATE: 201401
